FAERS Safety Report 20873887 (Version 1)
Quarter: 2022Q2

REPORT INFORMATION
  Report Type: Spontaneous
  Country: US (occurrence: None)
  Receive Date: 20220525
  Receipt Date: 20220525
  Transmission Date: 20220721
  Serious: Yes (Hospitalization)
  Sender: FDA-Public Use
  Company Number: None

PATIENT
  Sex: Female

DRUGS (3)
  1. DEFERASIROX [Suspect]
     Active Substance: DEFERASIROX
     Indication: Sickle cell disease
     Dosage: 720MG ONCE DAILY ORAL
     Route: 048
     Dates: start: 202101
  2. DEFERASIROX [Suspect]
     Active Substance: DEFERASIROX
     Indication: Anaemia
  3. DEFERASIROX [Suspect]
     Active Substance: DEFERASIROX
     Indication: Haemochromatosis

REACTIONS (2)
  - Sickle cell anaemia with crisis [None]
  - Product dose omission in error [None]
